FAERS Safety Report 5390174-0 (Version None)
Quarter: 2007Q3

REPORT INFORMATION
  Report Type: 
  Country: None (occurrence: None)
  Receive Date: 20070716
  Receipt Date: 20070716
  Transmission Date: 20080115
  Serious: No
  Sender: FDA-Public Use
  Company Number: None

PATIENT
  Age: 53 Year
  Sex: Male
  Weight: 72.5755 kg

DRUGS (3)
  1. LEVAQUIN [Suspect]
     Indication: URINARY TRACT INFECTION
     Dosage: 750 MG 1 DAILY PO
     Route: 048
     Dates: start: 20070507, end: 20070520
  2. LIPITOR [Concomitant]
  3. ASPIRIN [Concomitant]

REACTIONS (3)
  - GAIT DISTURBANCE [None]
  - PAIN [None]
  - TENDONITIS [None]
